FAERS Safety Report 10161537 (Version 2)
Quarter: 2014Q2

REPORT INFORMATION
  Report Type: Spontaneous
  Country: HU (occurrence: HU)
  Receive Date: 20140509
  Receipt Date: 20140526
  Transmission Date: 20141212
  Serious: Yes (Other)
  Sender: FDA-Public Use
  Company Number: HU-BIOGENIDEC-2014BI041972

PATIENT
  Age: 62 Year
  Sex: Male

DRUGS (4)
  1. AVONEX [Suspect]
     Indication: MULTIPLE SCLEROSIS
     Route: 030
     Dates: start: 2003, end: 20140418
  2. DIPREX [Concomitant]
  3. JANUMET [Concomitant]
  4. MEFORAL [Concomitant]

REACTIONS (1)
  - Squamous cell carcinoma of skin [Unknown]
